FAERS Safety Report 4321070-5 (Version None)
Quarter: 2004Q1

REPORT INFORMATION
  Report Type: 
  Country: None (occurrence: None)
  Receive Date: 20040322
  Receipt Date: 20040226
  Transmission Date: 20041129
  Serious: Yes (Hospitalization)
  Sender: FDA-Public Use
  Company Number: PHNR2004AU00707

PATIENT
  Age: 4 Year
  Sex: Male

DRUGS (1)
  1. SLOW-K [Suspect]
     Dosage: APPROXIMATELY 2 X 600 MG TABLETS
     Route: 048
     Dates: start: 20040220

REACTIONS (2)
  - ACCIDENTAL EXPOSURE [None]
  - NO ADVERSE EFFECT [None]
